FAERS Safety Report 13671444 (Version 1)
Quarter: 2017Q2

REPORT INFORMATION
  Report Type: Spontaneous
  Country: US (occurrence: US)
  Receive Date: 20170620
  Receipt Date: 20170620
  Transmission Date: 20170830
  Serious: No
  Sender: FDA-Public Use
  Company Number: US-ROCHE-1363007

PATIENT
  Sex: Female

DRUGS (1)
  1. XELODA [Suspect]
     Active Substance: CAPECITABINE
     Indication: NEOPLASM MALIGNANT
     Dosage: FOR 14 DAYS,  ON EVERY 21 DAYS
     Route: 048
     Dates: start: 20140102

REACTIONS (1)
  - Blister [Not Recovered/Not Resolved]
